FAERS Safety Report 9498376 (Version 1)
Quarter: 2013Q3

REPORT INFORMATION
  Report Type: Spontaneous
  Country: US (occurrence: None)
  Receive Date: 20130903
  Receipt Date: 20130903
  Transmission Date: 20140515
  Serious: Yes (Other)
  Sender: FDA-Public Use
  Company Number: None

PATIENT
  Age: 87 Year
  Sex: Male
  Weight: 73.94 kg

DRUGS (1)
  1. PRIMIDONE [Suspect]
     Indication: TREMOR
     Dosage: PRIMIDONE BID ORAL
     Route: 048

REACTIONS (1)
  - Product substitution issue [None]
